FAERS Safety Report 22054585 (Version 4)
Quarter: 2023Q2

REPORT INFORMATION
  Report Type: Spontaneous
  Country: US (occurrence: US)
  Receive Date: 20230302
  Receipt Date: 20230518
  Transmission Date: 20230721
  Serious: No
  Sender: FDA-Public Use
  Company Number: US-SA-SAC20230302000291

PATIENT
  Age: 13 Year
  Sex: Female

DRUGS (1)
  1. DUPIXENT [Suspect]
     Active Substance: DUPILUMAB
     Indication: Eosinophilic oesophagitis
     Dosage: 300 MG; FREQUENCY : OTHER
     Route: 058
     Dates: start: 202211, end: 2023

REACTIONS (5)
  - Injection site inflammation [Unknown]
  - Injection site pain [Unknown]
  - Product preparation error [Unknown]
  - Injection site swelling [Unknown]
  - Drug ineffective [Unknown]

NARRATIVE: CASE EVENT DATE: 20221130
